FAERS Safety Report 17390932 (Version 1)
Quarter: 2020Q1

REPORT INFORMATION
  Report Type: Spontaneous
  Country: US (occurrence: US)
  Receive Date: 20200207
  Receipt Date: 20200207
  Transmission Date: 20200409
  Serious: No
  Sender: FDA-Public Use
  Company Number: US-SHIRE-US202002092

PATIENT
  Sex: Female

DRUGS (1)
  1. XIIDRA [Suspect]
     Active Substance: LIFITEGRAST
     Indication: PRODUCT USED FOR UNKNOWN INDICATION
     Dosage: UNK
     Route: 047

REACTIONS (6)
  - Eye pain [Unknown]
  - Product storage error [Unknown]
  - Poor quality product administered [Unknown]
  - Crying [Unknown]
  - Eye irritation [Unknown]
  - Product container issue [Unknown]

NARRATIVE: CASE EVENT DATE: 2016
